FAERS Safety Report 13799641 (Version 1)
Quarter: 2017Q3

REPORT INFORMATION
  Report Type: Spontaneous
  Country: US (occurrence: US)
  Receive Date: 20170727
  Receipt Date: 20170727
  Transmission Date: 20171127
  Serious: No
  Sender: FDA-Public Use
  Company Number: None

PATIENT
  Age: 63 Year
  Sex: Male
  Weight: 58.5 kg

DRUGS (11)
  1. AZELASTINE [Concomitant]
     Active Substance: AZELASTINE
  2. VITAMIN B COMPLEX [Concomitant]
     Active Substance: CYANOCOBALAMIN\DEXPANTHENOL\NIACINAMIDE\PYRIDOXINE HYDROCHLORIDE\RIBOFLAVIN 5^-PHOSPHATE SODIUM\THIAMINE HYDROCHLORIDE\VITAMIN B COMPLEX
  3. DAILY SENIOR VITAMINS [Concomitant]
  4. CORRECTIVE LENSES [Concomitant]
  5. ASPIRIN. [Concomitant]
     Active Substance: ASPIRIN
  6. CALCIUM [Concomitant]
     Active Substance: CALCIUM
  7. HEARING AIDS [Concomitant]
  8. GELATIN [Concomitant]
     Active Substance: GELATIN
  9. TMJ/TMD MOUTH APPLIANCE [Concomitant]
  10. LOSARTAN 50MG [Suspect]
     Active Substance: LOSARTAN
     Indication: HYPERTENSION
     Dosage: ?          QUANTITY:1 TABLET(S);?
     Route: 048
  11. D [Concomitant]

REACTIONS (15)
  - Headache [None]
  - Hypoglycaemia [None]
  - Dysphonia [None]
  - Weight increased [None]
  - Anxiety [None]
  - Asthenia [None]
  - Thirst [None]
  - Malaise [None]
  - Somnolence [None]
  - Bradyphrenia [None]
  - Intentional product use issue [None]
  - Dizziness [None]
  - Initial insomnia [None]
  - Feeling abnormal [None]
  - Polydipsia [None]

NARRATIVE: CASE EVENT DATE: 20170116
